FAERS Safety Report 10241524 (Version 1)
Quarter: 2014Q2

REPORT INFORMATION
  Report Type: Spontaneous
  Country: CH (occurrence: CH)
  Receive Date: 20140617
  Receipt Date: 20140617
  Transmission Date: 20141212
  Serious: Yes (Other)
  Sender: FDA-Public Use
  Company Number: CH-ABBVIE-14K-151-1248185-00

PATIENT
  Age: 17 Year
  Sex: Male

DRUGS (2)
  1. DEPAKINE CHRONO [Suspect]
     Indication: MANIA
     Route: 048
     Dates: start: 201202, end: 201210
  2. ZYPREXA [Suspect]
     Indication: MANIA
     Route: 048
     Dates: start: 201202

REACTIONS (4)
  - Cholelithiasis [Not Recovered/Not Resolved]
  - Liver injury [Recovered/Resolved]
  - Hepatic steatosis [Recovered/Resolved]
  - Weight increased [Recovered/Resolved]
